FAERS Safety Report 6484853-1 (Version None)
Quarter: 2009Q4

REPORT INFORMATION
  Report Type: 
  Country: None (occurrence: None)
  Receive Date: 20091209
  Receipt Date: 20091130
  Transmission Date: 20100525
  Serious: Yes (Hospitalization)
  Sender: FDA-Public Use
  Company Number: PHHY2009JP53274

PATIENT
  Age: 70 Year
  Sex: Male

DRUGS (2)
  1. DIOVAN [Suspect]
     Indication: HYPERTENSION
     Dosage: 80 MG
     Route: 048
  2. ASPIRIN [Concomitant]
     Indication: HYPERTENSION
     Route: 048

REACTIONS (1)
  - MYOCARDIAL INFARCTION [None]
